FAERS Safety Report 5232795-1 (Version None)
Quarter: 2007Q1

REPORT INFORMATION
  Report Type: 
  Country: None (occurrence: None)
  Receive Date: 20070206
  Receipt Date: 20070206
  Transmission Date: 20070707
  Serious: Yes (Other)
  Sender: FDA-Public Use
  Company Number: None

PATIENT
  Age: 76 Year
  Sex: Male
  Weight: 76.2043 kg

DRUGS (1)
  1. UROXATRAL [Suspect]
     Indication: PROSTATE EXAMINATION ABNORMAL
     Dosage: 1 DAILY PO
     Route: 048
     Dates: start: 20061130, end: 20061215

REACTIONS (3)
  - AGGRESSION [None]
  - CONSTIPATION [None]
  - DEPRESSION [None]
